FAERS Safety Report 4313772-1 (Version None)
Quarter: 2004Q1

REPORT INFORMATION
  Report Type: 
  Country: None (occurrence: None)
  Receive Date: 20040305
  Receipt Date: 20040224
  Transmission Date: 20041129
  Serious: Yes (Life-Threatening, Hospitalization)
  Sender: FDA-Public Use
  Company Number: DEWYE524421JAN04

PATIENT
  Age: 71 Year
  Sex: Male

DRUGS (8)
  1. TAZOBAC (PIPERACILLIN/TAZOBACTAM, INJECTION) [Suspect]
     Indication: PNEUMONIA ASPIRATION
     Dosage: SEE IMAGE INTRAVENOUS
     Route: 042
     Dates: start: 20031205, end: 20031208
  2. TAZOBAC (PIPERACILLIN/TAZOBACTAM, INJECTION) [Suspect]
     Indication: PNEUMONIA ASPIRATION
     Dosage: SEE IMAGE INTRAVENOUS
     Route: 042
     Dates: start: 20031209, end: 20031211
  3. METRONIDAZOLE [Concomitant]
  4. MEROPENEM (MEROPENEM) [Concomitant]
  5. MUCOSOLVAN (AMBROXOL HYDROCHLORIDE) [Concomitant]
  6. RANITIDINE [Concomitant]
  7. FUROSEMIDE [Concomitant]
  8. ARTERENOL (NORPINEPHRINE HYDROCHLORIDE) [Concomitant]

REACTIONS (9)
  - BLOOD FIBRINOGEN NORMAL [None]
  - BODY TEMPERATURE INCREASED [None]
  - C-REACTIVE PROTEIN INCREASED [None]
  - CONDITION AGGRAVATED [None]
  - HEPATIC FAILURE [None]
  - RASH [None]
  - RENAL FAILURE ACUTE [None]
  - STAPHYLOCOCCAL INFECTION [None]
  - WHITE BLOOD CELL COUNT INCREASED [None]
